FAERS Safety Report 8814633 (Version 2)
Quarter: 2012Q4

REPORT INFORMATION
  Report Type: 
  Country: FR (occurrence: FR)
  Receive Date: 20120928
  Receipt Date: 20121218
  Transmission Date: 20130627
  Serious: Yes (Life-Threatening, Hospitalization, Disabling, Other)
  Sender: FDA-Public Use
  Company Number: FR-SANOFI-AVENTIS-2012SA068852

PATIENT
  Age: 71 Year
  Sex: Male
  Weight: 58 kg

DRUGS (7)
  1. LOVENOX [Suspect]
     Indication: CARDIAC VALVE PROSTHESIS USER
     Route: 058
     Dates: start: 20120801
  2. LOVENOX [Suspect]
     Indication: CARDIAC VALVE PROSTHESIS USER
     Route: 058
     Dates: start: 20120808, end: 20120808
  3. LOVENOX [Suspect]
     Indication: CARDIAC VALVE PROSTHESIS USER
     Route: 058
     Dates: start: 20120809, end: 20120809
  4. KARDEGIC [Suspect]
     Indication: TRANSIENT ISCHAEMIC ATTACK
     Route: 048
     Dates: start: 20120808
  5. VIT K ANTAGONISTS [Concomitant]
     Indication: CARDIAC VALVE PROSTHESIS USER
     Route: 048
     Dates: end: 20120731
  6. DOLIPRANE [Concomitant]
     Route: 048
     Dates: start: 20120809
  7. COAPROVEL [Concomitant]
     Indication: HYPERTENSION ARTERIAL
     Route: 048
     Dates: start: 20120807

REACTIONS (2)
  - Quadriplegia [Recovered/Resolved with Sequelae]
  - Spinal haematoma [Recovered/Resolved with Sequelae]
